FAERS Safety Report 4423193-9 (Version None)
Quarter: 2004Q3

REPORT INFORMATION
  Report Type: 
  Country: None (occurrence: None)
  Receive Date: 20040805
  Receipt Date: 20040723
  Transmission Date: 20050211
  Serious: Yes (Other)
  Sender: FDA-Public Use
  Company Number: US-JNJFOC-20040706474

PATIENT
  Age: 76 Year
  Sex: Female

DRUGS (14)
  1. INFLIXIMAB (INFLIXIMAB,  RECOMBINANT) LYOPHILIZED POWDER [Suspect]
     Indication: RHEUMATOID ARTHRITIS
     Dosage: EVERY 8 WEEKS
     Dates: start: 20000927, end: 20030813
  2. SINEMET [Concomitant]
  3. PREMARIN [Concomitant]
  4. FOSAMAX [Concomitant]
  5. IMODIUM (LOPERAMIDE HYDROCLORIDE) [Concomitant]
  6. CALCIUM D (CALCIUM WITH VITAMIN D) [Concomitant]
  7. VERAPAMIL [Concomitant]
  8. FERROUS SULPHATE (FERROUS SULFATE) [Concomitant]
  9. AMITRIPTYLINE (AMITRIPTYLINE) TABLETS [Concomitant]
  10. PRILOSEC [Concomitant]
  11. PREDNISONE [Concomitant]
  12. MULTIVITAMIN (MULTIVITAMINS) [Concomitant]
  13. ASPIRIN [Concomitant]
  14. B12 (CYANOCOBALAMIN) [Concomitant]

REACTIONS (1)
  - VAGINAL CANCER [None]
